FAERS Safety Report 9886747 (Version 2)
Quarter: 2014Q1

REPORT INFORMATION
  Report Type: Report from Study
  Country: CL (occurrence: CL)
  Receive Date: 20140210
  Receipt Date: 20140217
  Transmission Date: 20141002
  Serious: Yes (Other)
  Sender: FDA-Public Use
  Company Number: PHHY2014CL016185

PATIENT
  Age: 82 Year
  Sex: Female

DRUGS (2)
  1. TAREG D [Suspect]
     Indication: HYPERTENSION
     Dosage: 1 DF (80/12.5 MG), DAILY
     Route: 048
  2. ARNICA                             /06527501/ [Concomitant]
     Indication: CARDIOVASCULAR DISORDER
     Dosage: UNK, PRN
     Route: 048

REACTIONS (10)
  - Cerebrovascular accident [Recovering/Resolving]
  - Muscular weakness [Unknown]
  - Head discomfort [Unknown]
  - Thrombosis [Unknown]
  - Respiratory disorder [Recovered/Resolved]
  - Vein disorder [Recovered/Resolved]
  - Feeling abnormal [Recovered/Resolved]
  - Skin discolouration [Unknown]
  - Movement disorder [Unknown]
  - Oedema peripheral [Unknown]
